FAERS Safety Report 9296824 (Version 1)
Quarter: 2013Q2

REPORT INFORMATION
  Report Type: Spontaneous
  Country: GB (occurrence: GB)
  Receive Date: 20130517
  Receipt Date: 20130517
  Transmission Date: 20140414
  Serious: Yes (Hospitalization)
  Sender: FDA-Public Use
  Company Number: GXKR2003GB02673

PATIENT
  Age: 81 Year
  Sex: Male

DRUGS (6)
  1. ATENOLOL [Suspect]
     Dosage: 100 MG, DAILY
     Route: 048
     Dates: start: 19970101
  2. ISOSORBIDE [Concomitant]
     Dosage: 50 MG, DAILY
     Route: 048
     Dates: start: 20010119
  3. ASPIRIN [Concomitant]
     Route: 048
  4. RAMIPRIL [Concomitant]
     Dosage: 10 MG, DAILY
     Route: 048
  5. AMLODIPINE [Concomitant]
     Route: 048
  6. PRAVASTATIN [Concomitant]
     Route: 048

REACTIONS (3)
  - Circulatory collapse [Unknown]
  - Dizziness [Unknown]
  - Bradycardia [Unknown]
